FAERS Safety Report 23318626 (Version 3)
Quarter: 2023Q4

REPORT INFORMATION
  Report Type: Spontaneous
  Country: US (occurrence: US)
  Receive Date: 20231220
  Receipt Date: 20231227
  Transmission Date: 20240110
  Serious: Yes (Other)
  Sender: FDA-Public Use
  Company Number: US-SANDOZ-SDZ2023US069308

PATIENT
  Sex: Female
  Weight: 78.92 kg

DRUGS (1)
  1. VOLTAREN [Suspect]
     Active Substance: DICLOFENAC SODIUM
     Indication: Axial spondyloarthritis
     Dosage: UNK
     Route: 065

REACTIONS (28)
  - Axial spondyloarthritis [Unknown]
  - Inflammatory pain [Unknown]
  - Pain in extremity [Unknown]
  - Musculoskeletal stiffness [Unknown]
  - Dry eye [Unknown]
  - Dry mouth [Unknown]
  - Joint swelling [Unknown]
  - Sleep disorder [Unknown]
  - Tenderness [Unknown]
  - HLA-B*27 positive [Unknown]
  - Vitamin B12 deficiency [Unknown]
  - Feeling of despair [Unknown]
  - Nausea [Unknown]
  - Headache [Unknown]
  - Fatigue [Unknown]
  - Arthralgia [Unknown]
  - Drug ineffective [Unknown]
  - Fibromyalgia [Unknown]
  - Condition aggravated [Unknown]
  - Intervertebral disc protrusion [Unknown]
  - Red blood cell sedimentation rate increased [Unknown]
  - Myalgia [Unknown]
  - Back pain [Unknown]
  - Infection [Unknown]
  - Joint range of motion decreased [Unknown]
  - Rheumatoid factor increased [Unknown]
  - Depressed mood [Unknown]
  - Depression [Unknown]
